FAERS Safety Report 4978011-7 (Version None)
Quarter: 2006Q2

REPORT INFORMATION
  Report Type: 
  Country: None (occurrence: None)
  Receive Date: 20060420
  Receipt Date: 20051003
  Transmission Date: 20061013
  Serious: Yes (Disabling)
  Sender: FDA-Public Use
  Company Number: US-MERCK-0510USA02841

PATIENT
  Age: 68 Year
  Sex: Male
  Weight: 142 kg

DRUGS (1)
  1. VIOXX [Suspect]
     Indication: MONARTHRITIS
     Route: 048
     Dates: start: 20000711, end: 20040901

REACTIONS (4)
  - ARTERIAL DISORDER [None]
  - BALANCE DISORDER [None]
  - RENAL DISORDER [None]
  - TRANSIENT ISCHAEMIC ATTACK [None]
